FAERS Safety Report 25514143 (Version 2)
Quarter: 2025Q3

REPORT INFORMATION
  Report Type: Report from Study
  Country: US (occurrence: US)
  Receive Date: 20250703
  Receipt Date: 20250919
  Transmission Date: 20251020
  Serious: No
  Sender: SANOFI AVENTIS
  Company Number: US-SA-2025SA186587

PATIENT
  Age: 73 Year
  Sex: Male

DRUGS (23)
  1. DUPILUMAB [Suspect]
     Active Substance: DUPILUMAB
     Indication: Asthma
     Dosage: 300 MG, QOW
     Route: 058
     Dates: start: 20250519, end: 20250619
  2. FARXIGA [Concomitant]
     Active Substance: DAPAGLIFLOZIN PROPANEDIOL
  3. HYDROCHLOROTHIAZIDE [Concomitant]
     Active Substance: HYDROCHLOROTHIAZIDE
  4. TRAZODONE HCL [Concomitant]
     Active Substance: TRAZODONE HYDROCHLORIDE
  5. TRELEGY ELLIPTA [Concomitant]
     Active Substance: FLUTICASONE FUROATE\UMECLIDINIUM BROMIDE\VILANTEROL TRIFENATATE
  6. TAMSULOSIN HYDROCHLORIDE [Concomitant]
     Active Substance: TAMSULOSIN HYDROCHLORIDE
  7. ALBUTEROL SULFATE [Concomitant]
     Active Substance: ALBUTEROL SULFATE
  8. ALBUTEROL SULFATE [Concomitant]
     Active Substance: ALBUTEROL SULFATE
  9. BACLOFEN [Concomitant]
     Active Substance: BACLOFEN
  10. CARVEDILOL [Concomitant]
     Active Substance: CARVEDILOL
  11. CLONIDINE [Concomitant]
     Active Substance: CLONIDINE
  12. CONSTULOSE [Concomitant]
     Active Substance: LACTULOSE
  13. CRESTOR [Concomitant]
     Active Substance: ROSUVASTATIN CALCIUM
  14. DORZOLAMIDE [Concomitant]
     Active Substance: DORZOLAMIDE
  15. ELIQUIS [Concomitant]
     Active Substance: APIXABAN
  16. GABAPENTIN [Concomitant]
     Active Substance: GABAPENTIN
  17. GLIPIZIDE [Concomitant]
     Active Substance: GLIPIZIDE
  18. ISOSORBIDE DINITRATE [Concomitant]
     Active Substance: ISOSORBIDE DINITRATE
  19. MIRTAZAPINE [Concomitant]
     Active Substance: MIRTAZAPINE
  20. MORPHINE SULFATE [Concomitant]
     Active Substance: MORPHINE SULFATE
  21. OXYCODONE HYDROCHLORIDE [Concomitant]
     Active Substance: OXYCODONE HYDROCHLORIDE
  22. PAROXETINE HYDROCHLORIDE [Concomitant]
     Active Substance: PAROXETINE HYDROCHLORIDE
  23. PREDNISOLONE ACETATE [Concomitant]
     Active Substance: PREDNISOLONE ACETATE

REACTIONS (1)
  - Eye infection [Recovering/Resolving]

NARRATIVE: CASE EVENT DATE: 20250501
